FAERS Safety Report 22385026 (Version 1)
Quarter: 2023Q2

REPORT INFORMATION
  Report Type: Spontaneous
  Country: US (occurrence: None)
  Receive Date: 20230528
  Receipt Date: 20230528
  Transmission Date: 20230722
  Serious: Yes (Disabling)
  Sender: FDA-Public Use
  Company Number: None

PATIENT
  Age: 62 Year
  Sex: Female

DRUGS (10)
  1. RISPERIDONE [Suspect]
     Active Substance: RISPERIDONE
     Indication: Product used for unknown indication
     Dosage: OTHER QUANTITY : 15 TABLET(S);?FREQUENCY : AT BEDTIME;?
  2. NITROFURANTOIN [Concomitant]
     Active Substance: NITROFURANTOIN
  3. LEVOTHYROXINE [Concomitant]
     Active Substance: LEVOTHYROXINE
  4. ALLLEGRA D [Concomitant]
  5. WOMENS MULTI GUMMMIES MELATONIN [Concomitant]
  6. MECLIZINE [Concomitant]
     Active Substance: MECLIZINE HYDROCHLORIDE
  7. GAS-X [Concomitant]
     Active Substance: DIMETHICONE
  8. VITAMIN D [Concomitant]
     Active Substance: VITAMIN D NOS
  9. VITAMIN B [Concomitant]
     Active Substance: VITAMIN B
  10. VITAMIN C [Concomitant]
     Active Substance: ASCORBIC ACID

REACTIONS (3)
  - Dizziness [None]
  - Tremor [None]
  - Sensory disturbance [None]

NARRATIVE: CASE EVENT DATE: 20230526
